FAERS Safety Report 8032987-2 (Version None)
Quarter: 2012Q1

REPORT INFORMATION
  Report Type: 
  Country: None (occurrence: None)
  Receive Date: 20120110
  Receipt Date: 20111228
  Transmission Date: 20120608
  Serious: Yes (Hospitalization, Other)
  Sender: FDA-Public Use
  Company Number: US-ELI_LILLY_AND_COMPANY-US201107003897

PATIENT
  Age: 79 Year
  Sex: Female

DRUGS (24)
  1. FORTEO [Suspect]
     Dosage: 20 UG, QD
  2. NEXIUM [Concomitant]
  3. ISOSORBIDE DINITRATE [Concomitant]
  4. CALCIUM ACETATE [Concomitant]
     Dosage: UNK
  5. XOPENEX [Concomitant]
  6. DILTIAZEM HCL [Concomitant]
  7. LASIX [Concomitant]
  8. ALDACTONE [Concomitant]
  9. MULTI-VITAMIN [Concomitant]
  10. FORTEO [Suspect]
     Indication: OSTEOPOROSIS
     Dosage: 20 UG, QD
     Route: 065
     Dates: start: 20060801
  11. VITAMIN D [Concomitant]
  12. FOLIC ACID [Concomitant]
     Dosage: UNK
  13. MAGNESIUM [Concomitant]
  14. ZINC [Concomitant]
  15. FORTEO [Suspect]
     Dosage: 20 UG, QD
     Dates: start: 20110601
  16. FORTEO [Suspect]
     Dosage: 20 UG, QD
     Dates: start: 20110101
  17. SYMBICORT [Concomitant]
     Indication: HYPERSENSITIVITY
  18. FORTEO [Suspect]
     Dosage: 20 UG, QD
     Dates: end: 20110701
  19. ASPIRIN [Concomitant]
  20. POTASSIUM CHLORIDE [Concomitant]
  21. CARDIZEM [Concomitant]
     Indication: CARDIAC DISORDER
  22. BISOPROLOL FUMARATE [Concomitant]
  23. COUMADIN [Concomitant]
  24. BENTYL [Concomitant]

REACTIONS (26)
  - COMPRESSION FRACTURE [None]
  - OEDEMA PERIPHERAL [None]
  - RHEUMATOID ARTHRITIS [None]
  - CHRONIC OBSTRUCTIVE PULMONARY DISEASE [None]
  - HAEMORRHOIDS [None]
  - PAIN [None]
  - PNEUMONIA [None]
  - MEMORY IMPAIRMENT [None]
  - SPEECH DISORDER [None]
  - RECTAL HAEMORRHAGE [None]
  - UPPER LIMB FRACTURE [None]
  - NAUSEA [None]
  - PLATELET COUNT DECREASED [None]
  - HOSPITALISATION [None]
  - FALL [None]
  - ROTATOR CUFF SYNDROME [None]
  - MALAISE [None]
  - GAIT DISTURBANCE [None]
  - ARTHRALGIA [None]
  - CARDIAC DISORDER [None]
  - ARTHROPATHY [None]
  - BLOOD CHOLESTEROL INCREASED [None]
  - CARDIAC FAILURE CONGESTIVE [None]
  - LARGE INTESTINAL HAEMORRHAGE [None]
  - DYSPNOEA [None]
  - ARTHRITIS [None]
